FAERS Safety Report 5231826-2 (Version None)
Quarter: 2007Q1

REPORT INFORMATION
  Report Type: 
  Country: None (occurrence: None)
  Receive Date: 20070206
  Receipt Date: 20070129
  Transmission Date: 20070707
  Serious: Yes (Death, Life-Threatening, Hospitalization, Other)
  Sender: FDA-Public Use
  Company Number: US-PFIZER INC-2004074993

PATIENT
  Sex: Male
  Weight: 108.9 kg

DRUGS (21)
  1. NEURONTIN [Suspect]
     Indication: DIABETIC NEUROPATHY
  2. NEURONTIN [Suspect]
     Indication: PAIN
  3. CELEBREX [Suspect]
     Indication: OSTEOARTHRITIS
  4. PAXIL [Suspect]
     Indication: DEPRESSION
  5. AMITRIPTYLINE WITH PERPHENAZINE [Suspect]
     Indication: DEPRESSION
  6. OXYCONTIN [Suspect]
     Indication: PAIN
  7. PARACETAMOL [Suspect]
  8. NEXIUM [Concomitant]
  9. BACLOFEN [Concomitant]
  10. INSULIN [Concomitant]
     Route: 065
  11. DURAGESIC [Concomitant]
  12. GLUCOPHAGE [Concomitant]
  13. VIOXX [Concomitant]
     Indication: OSTEOARTHRITIS
     Dates: start: 20000317
  14. ULTRAM [Concomitant]
     Indication: OSTEOARTHRITIS
  15. RISPERDAL [Concomitant]
  16. AMBIEN [Concomitant]
     Indication: INSOMNIA
  17. PERCOCET [Concomitant]
  18. METHOCARBAMOL [Concomitant]
  19. RELAFEN [Concomitant]
  20. CLONIDINE [Concomitant]
  21. WELLBUTRIN [Concomitant]

REACTIONS (17)
  - COMPLETED SUICIDE [None]
  - DEPRESSION [None]
  - DRUG ABUSER [None]
  - DRUG INEFFECTIVE [None]
  - DRUG TOXICITY [None]
  - GRAND MAL CONVULSION [None]
  - HYPOKALAEMIA [None]
  - HYPOTENSION [None]
  - INJURY [None]
  - INTENTIONAL OVERDOSE [None]
  - MENTAL STATUS CHANGES [None]
  - METABOLIC ACIDOSIS [None]
  - PNEUMONIA ASPIRATION [None]
  - PSYCHOTIC DISORDER [None]
  - RESPIRATORY DISTRESS [None]
  - RESPIRATORY FAILURE [None]
  - SOMNOLENCE [None]
